FAERS Safety Report 6773626-8 (Version None)
Quarter: 2010Q2

REPORT INFORMATION
  Report Type: 
  Country: None (occurrence: None)
  Receive Date: 20100616
  Receipt Date: 20100608
  Transmission Date: 20101027
  Serious: Yes (Hospitalization, Other)
  Sender: FDA-Public Use
  Company Number: BE-ABBOTT-09P-013-0605342-00

PATIENT
  Sex: Male
  Weight: 53 kg

DRUGS (3)
  1. KALETRA [Suspect]
     Indication: HIV INFECTION
     Dosage: DAILY 400/100MG, UNIT 200MG/50MG, FORM STRENGTH 200 MG/50 MG
     Dates: start: 20080305, end: 20080407
  2. KALETRA [Suspect]
     Dosage: DAILY 800/200MG,UNIT 400/100, FORM STREGTH 200/50
     Dates: start: 20080408
  3. RETROVIR [Concomitant]
     Indication: DRUG USE FOR UNKNOWN INDICATION
     Dosage: 600/300MG DAILY
     Dates: start: 20080305

REACTIONS (39)
  - ABDOMINAL DISCOMFORT [None]
  - ANAEMIA [None]
  - ASTHENIA [None]
  - BLOOD GLUCOSE ABNORMAL [None]
  - CONFUSIONAL STATE [None]
  - COUGH [None]
  - DYSPHAGIA [None]
  - DYSPNOEA [None]
  - EMPHYSEMA [None]
  - FATIGUE [None]
  - FLUID RETENTION [None]
  - GENERAL PHYSICAL HEALTH DETERIORATION [None]
  - GLOMERULONEPHRITIS [None]
  - HAEMATOCHEZIA [None]
  - HYPERKALAEMIA [None]
  - HYPOKALAEMIA [None]
  - HYPONATRAEMIA [None]
  - HYPOPROTEINAEMIA [None]
  - LEISHMANIASIS [None]
  - LEUKOPENIA [None]
  - LUNG INFILTRATION [None]
  - MENINGEAL DISORDER [None]
  - MITRAL VALVE INCOMPETENCE [None]
  - NOCTURIA [None]
  - OROPHARYNGEAL CANDIDIASIS [None]
  - PANCYTOPENIA [None]
  - PAPILLOMA [None]
  - PRODUCTIVE COUGH [None]
  - PYREXIA [None]
  - RENAL FAILURE [None]
  - RENAL IMPAIRMENT [None]
  - SEPSIS [None]
  - SOMNOLENCE [None]
  - SPUTUM DISCOLOURED [None]
  - STAPHYLOCOCCAL BACTERAEMIA [None]
  - STAPHYLOCOCCAL INFECTION [None]
  - THROMBOCYTOPENIA [None]
  - URINARY TRACT INFECTION BACTERIAL [None]
  - VISCERAL LEISHMANIASIS [None]
